FAERS Safety Report 4342467-3 (Version None)
Quarter: 2004Q2

REPORT INFORMATION
  Report Type: 
  Country: None (occurrence: None)
  Receive Date: 20040420
  Receipt Date: 20040419
  Transmission Date: 20050107
  Serious: Yes (Other)
  Sender: FDA-Public Use
  Company Number: 001265

PATIENT
  Age: 42 Year
  Sex: Female
  Weight: 63.5 kg

DRUGS (1)
  1. WARFARIN SODIUM [Suspect]
     Indication: ANTICOAGULANT THERAPY
     Dosage: 10.00 MG, QD, ORAL
     Route: 048
     Dates: start: 20010101

REACTIONS (6)
  - DIZZINESS [None]
  - FATIGUE [None]
  - MYALGIA [None]
  - PANCREATIC DISORDER [None]
  - SWELLING [None]
  - VISION BLURRED [None]
